FAERS Safety Report 6424580-X (Version None)
Quarter: 2009Q4

REPORT INFORMATION
  Report Type: 
  Country: None (occurrence: None)
  Receive Date: 20091103
  Receipt Date: 20091020
  Transmission Date: 20100525
  Serious: Yes (Hospitalization)
  Sender: FDA-Public Use
  Company Number: PHHY2009IE39516

PATIENT
  Sex: Female

DRUGS (10)
  1. CLOZARIL [Suspect]
     Indication: SCHIZOPHRENIA
     Dosage: UNK
     Dates: start: 20050210
  2. PARACETAMOL [Suspect]
     Indication: INSOMNIA
     Dosage: 24 DF, ONCE/SINGLE
     Route: 048
     Dates: start: 20090909
  3. ZIMOVANE [Suspect]
     Dosage: 40 DF, ONCE/SINGLE
     Route: 048
     Dates: start: 20090909
  4. DALMANE [Suspect]
     Dosage: COLLECTED OVER TIME
  5. PRIADEL [Concomitant]
     Dosage: 1000 MG NOCTE
     Route: 048
  6. CLOZAPINE [Concomitant]
     Indication: SCHIZOPHRENIA
     Dosage: 600 MG, UNK
     Route: 048
  7. ELTROXIN [Concomitant]
     Dosage: 150 UG, UNK
     Route: 048
  8. SOLIAN [Concomitant]
     Dosage: 600 MG, UNK
     Route: 048
  9. NEURONTIN [Concomitant]
     Dosage: 300 MG,TDS
     Route: 048
  10. PARNATE [Concomitant]
     Dosage: 20 MG, TDS
     Route: 048

REACTIONS (4)
  - BLOOD GLUCOSE INCREASED [None]
  - OVERDOSE [None]
  - SUICIDE ATTEMPT [None]
  - WHITE BLOOD CELL COUNT INCREASED [None]
